FAERS Safety Report 7678651-0 (Version None)
Quarter: 2011Q3

REPORT INFORMATION
  Report Type: 
  Country: None (occurrence: None)
  Receive Date: 20110811
  Receipt Date: 20110809
  Transmission Date: 20111222
  Serious: Yes (Other)
  Sender: FDA-Public Use
  Company Number: US-ABBOTT-11P-163-0844967-00

PATIENT
  Sex: Female
  Weight: 81.72 kg

DRUGS (11)
  1. ASACOL [Concomitant]
     Indication: CROHN'S DISEASE
  2. ASPIRIN [Concomitant]
     Indication: CARDIAC DISORDER
  3. CITALOPRAM HYDROBROMIDE [Concomitant]
     Indication: ANXIOLYTIC THERAPY
  4. SIMVASTATIN [Concomitant]
     Indication: BLOOD CHOLESTEROL INCREASED
  5. OMEPRAZOLE [Concomitant]
     Indication: GASTROOESOPHAGEAL REFLUX DISEASE
  6. ZOLPIDEM [Concomitant]
     Indication: INSOMNIA
  7. HUMIRA [Suspect]
     Indication: CROHN'S DISEASE
     Dates: start: 20110510, end: 20110802
  8. AMLODIPINE [Concomitant]
     Indication: HYPERTENSION
  9. NYSTATIN [Concomitant]
     Indication: MOUTH ULCERATION
     Dosage: MOUTH WASH FOUR TIMES DAILY
  10. HYDROCODONE [Concomitant]
     Indication: CROHN'S DISEASE
  11. CIPROFLOXACIN [Concomitant]
     Indication: CROHN'S DISEASE

REACTIONS (8)
  - NODULE [None]
  - PHOTOSENSITIVITY REACTION [None]
  - LOSS OF CONSCIOUSNESS [None]
  - HYPERACUSIS [None]
  - NAUSEA [None]
  - HEADACHE [None]
  - SINUSITIS [None]
  - BLOOD PRESSURE INCREASED [None]
